FAERS Safety Report 23115064 (Version 1)
Quarter: 2023Q4

REPORT INFORMATION
  Report Type: Spontaneous
  Country: US (occurrence: None)
  Receive Date: 20231026
  Receipt Date: 20231026
  Transmission Date: 20240109
  Serious: Yes (Other)
  Sender: FDA-Public Use
  Company Number: None

PATIENT
  Sex: Male

DRUGS (10)
  1. HUMIRA [Suspect]
     Active Substance: ADALIMUMAB
     Indication: Ankylosing spondylitis
     Route: 058
     Dates: start: 20201010
  2. ASPIRIN TAB 325MG EC [Concomitant]
  3. FAMOTIDINE TAB 20MG [Concomitant]
  4. HYDROCO/APAP TAB 10-325MG [Concomitant]
  5. MULTI-VITAMIN TAB [Concomitant]
  6. MULTIVITAMIN CAP [Concomitant]
  7. NABUMETONE TAB 500MG [Concomitant]
  8. PROTONIX TAB 40MG [Concomitant]
  9. VICODIN TAB 5-500MG [Concomitant]
  10. VITAMIN B TAB COMPLEX [Concomitant]

REACTIONS (3)
  - Intentional dose omission [None]
  - Ankylosing spondylitis [None]
  - Loss of personal independence in daily activities [None]
